FAERS Safety Report 7415440-6 (Version None)
Quarter: 2011Q2

REPORT INFORMATION
  Report Type: 
  Country: None (occurrence: None)
  Receive Date: 20110406
  Receipt Date: 20110321
  Transmission Date: 20111010
  Serious: Yes (Hospitalization, Disabling, Other)
  Sender: FDA-Public Use
  Company Number: 2008S1005626

PATIENT
  Age: 66 Year
  Sex: Male
  Weight: 81.6475 kg

DRUGS (13)
  1. ATENOLOL [Concomitant]
  2. TRICOR [Concomitant]
  3. ACTOS [Concomitant]
  4. WELCHOL [Concomitant]
  5. ASPIRIN [Concomitant]
  6. NORVASC [Concomitant]
  7. LESCOL XL [Concomitant]
  8. GLUCOPHAGE [Concomitant]
  9. NEXIUM [Concomitant]
  10. AMARYL [Concomitant]
  11. ZETIA [Concomitant]
  12. PHOSPHOSODA FLAVOR NOT SPECIFIED [Suspect]
     Indication: COLONOSCOPY
     Dosage: 45 ML;X1;PO
     Route: 048
     Dates: start: 20060607, end: 20060607
  13. PHOSPHOSODA FLAVOR NOT SPECIFIED [Suspect]
     Indication: ENDOSCOPY UPPER GASTROINTESTINAL TRACT
     Dosage: 45 ML;X1;PO
     Route: 048
     Dates: start: 20060607, end: 20060607

REACTIONS (13)
  - RENAL TUBULAR NECROSIS [None]
  - NEPHROCALCINOSIS [None]
  - CONSTIPATION [None]
  - MUCOSAL DRYNESS [None]
  - DEHYDRATION [None]
  - DIARRHOEA [None]
  - CARDIAC FAILURE [None]
  - RENAL FAILURE ACUTE [None]
  - METABOLIC ACIDOSIS [None]
  - ARTERIOSCLEROSIS [None]
  - ABDOMINAL DISTENSION [None]
  - PLEURAL EFFUSION [None]
  - PNEUMONIA [None]
